FAERS Safety Report 9290464 (Version 1)
Quarter: 2013Q2

REPORT INFORMATION
  Report Type: Spontaneous
  Country: US (occurrence: US)
  Receive Date: 20130514
  Receipt Date: 20130514
  Transmission Date: 20140414
  Serious: No
  Sender: FDA-Public Use
  Company Number: US-BRACCO-008253

PATIENT
  Age: 7 Year
  Sex: Male
  Weight: 39 kg

DRUGS (3)
  1. PROHANCE [Suspect]
     Indication: NUCLEAR MAGNETIC RESONANCE IMAGING
     Dosage: RT. AC
     Route: 042
     Dates: start: 20120627, end: 20120627
  2. PROHANCE [Suspect]
     Indication: CELLULITIS
     Dosage: RT. AC
     Route: 042
     Dates: start: 20120627, end: 20120627
  3. PROHANCE [Suspect]
     Indication: ABSCESS
     Dosage: RT. AC
     Route: 042
     Dates: start: 20120627, end: 20120627

REACTIONS (6)
  - Cough [Recovered/Resolved]
  - Throat irritation [Recovered/Resolved]
  - Flushing [Recovered/Resolved]
  - Vomiting [Recovered/Resolved]
  - Ocular hyperaemia [Recovered/Resolved]
  - Sneezing [Recovered/Resolved]
